FAERS Safety Report 6147664-2 (Version None)
Quarter: 2009Q2

REPORT INFORMATION
  Report Type: 
  Country: None (occurrence: None)
  Receive Date: 20090408
  Receipt Date: 20090327
  Transmission Date: 20091009
  Serious: Yes (Hospitalization, Other)
  Sender: FDA-Public Use
  Company Number: PHHY2009JP09941

PATIENT
  Age: 73 Year
  Sex: Female

DRUGS (2)
  1. TEGRETOL [Suspect]
     Indication: TRIGEMINAL NEURALGIA
     Dosage: UNK
  2. TEGRETOL [Suspect]
     Indication: NEURALGIA

REACTIONS (15)
  - ATROPHY [None]
  - DRUG INEFFECTIVE [None]
  - EATING DISORDER [None]
  - GAIT DISTURBANCE [None]
  - GINGIVAL SWELLING [None]
  - HYPOAESTHESIA [None]
  - MASTICATION DISORDER [None]
  - NERVE BLOCK [None]
  - NEURALGIA [None]
  - NUCLEAR MAGNETIC RESONANCE IMAGING ABNORMAL [None]
  - ODYNOPHAGIA [None]
  - PERIPHERAL NERVE DECOMPRESSION [None]
  - SPEECH DISORDER [None]
  - TENDERNESS [None]
  - WHEELCHAIR USER [None]
